FAERS Safety Report 7575614-0 (Version None)
Quarter: 2011Q2

REPORT INFORMATION
  Report Type: 
  Country: None (occurrence: None)
  Receive Date: 20110627
  Receipt Date: 20110614
  Transmission Date: 20111010
  Serious: Yes (Hospitalization)
  Sender: FDA-Public Use
  Company Number: NL-MYLANLABS-2011S1012285

PATIENT
  Age: 26 Year
  Sex: Male
  Weight: 60 kg

DRUGS (2)
  1. METOPROLOL TARTRATE [Suspect]
     Indication: PRODUCT USED FOR UNKNOWN INDICATION
     Dosage: 1 DD 50 MG
     Route: 048
     Dates: start: 20100815
  2. CITALOPRAM ACTAVIS TABLET OMHULD 20MG [Concomitant]
     Indication: DEPRESSION
     Dosage: 1 DD 20 MG
     Route: 048
     Dates: start: 20110101, end: 20110402

REACTIONS (1)
  - VENTRICULAR FIBRILLATION [None]
